FAERS Safety Report 15841906 (Version 1)
Quarter: 2018Q4

REPORT INFORMATION
  Report Type: Spontaneous
  Country: US (occurrence: US)
  Receive Date: 20181224
  Receipt Date: 20181224
  Transmission Date: 20190205
  Serious: Yes (Death)
  Sender: FDA-Public Use
  Company Number: None

PATIENT
  Age: 54 Year
  Sex: Male

DRUGS (1)
  1. GRANIX [Suspect]
     Active Substance: TBO-FILGRASTIM
     Indication: OESOPHAGEAL CARCINOMA
     Dosage: OTHER FREQUENCY:3 DAYS EVERY 2 WK;?
     Route: 058
     Dates: start: 20180817, end: 201812

REACTIONS (1)
  - Death [None]

NARRATIVE: CASE EVENT DATE: 20181221
